FAERS Safety Report 7205633-5 (Version None)
Quarter: 2010Q4

REPORT INFORMATION
  Report Type: 
  Country: None (occurrence: None)
  Receive Date: 20101231
  Receipt Date: 20101227
  Transmission Date: 20110411
  Serious: Yes (Other)
  Sender: FDA-Public Use
  Company Number: GB-PFIZER INC-2010138564

PATIENT
  Age: 56 Year
  Sex: Female

DRUGS (3)
  1. AZITHROMYCIN [Suspect]
     Dosage: 500 MG, 2X/DAY
     Route: 048
     Dates: start: 20100707, end: 20101027
  2. AMOXICILLIN [Concomitant]
     Indication: LYME DISEASE
     Dosage: 500 MG, 3X/DAY 4 DAYS A WEEK
     Route: 048
     Dates: start: 20100202
  3. TINIDAZOLE [Concomitant]
     Indication: LYME DISEASE
     Dosage: 500 MG, 2X/DAY THREE DAYS A WEEK
     Route: 048
     Dates: start: 20100202

REACTIONS (3)
  - ANGINA PECTORIS [None]
  - BUNDLE BRANCH BLOCK LEFT [None]
  - CHEST PAIN [None]
